FAERS Safety Report 7520132-9 (Version None)
Quarter: 2011Q2

REPORT INFORMATION
  Report Type: 
  Country: None (occurrence: None)
  Receive Date: 20110602
  Receipt Date: 20110518
  Transmission Date: 20111010
  Serious: Yes (Other)
  Sender: FDA-Public Use
  Company Number: US-BAYER-2011-044055

PATIENT
  Age: 83 Year
  Sex: Female
  Weight: 73 kg

DRUGS (6)
  1. NERVOUS SYSTEM [Concomitant]
  2. ANTIDEPRESSANTS [Concomitant]
  3. ASPIRIN [Suspect]
     Indication: ISCHAEMIC HEART DISEASE PROPHYLAXIS
     Dosage: COUNT SIZE 36S
     Route: 048
     Dates: start: 20110101, end: 20110512
  4. CARDIOVASCULAR SYSTEM DRUGS [Concomitant]
  5. METRONIDAZOLE [Concomitant]
     Dosage: 50 MG, BID
     Route: 048
     Dates: start: 20110513
  6. CIPRO [Concomitant]
     Dosage: 1 DF, BID
     Route: 048
     Dates: start: 20110513

REACTIONS (5)
  - FAECES DISCOLOURED [None]
  - HAEMATOCHEZIA [None]
  - ENTEROCOLITIS INFECTIOUS [None]
  - DIARRHOEA [None]
  - VOMITING [None]
